FAERS Safety Report 4744071-1 (Version None)
Quarter: 2005Q3

REPORT INFORMATION
  Report Type: 
  Country: None (occurrence: None)
  Receive Date: 20050809
  Receipt Date: 20050803
  Transmission Date: 20060218
  Serious: Yes (Death)
  Sender: FDA-Public Use
  Company Number: HQWYE709304AUG05

PATIENT

DRUGS (1)
  1. PHENERGAN [Suspect]
     Dosage: TRANSPLACENTAL
     Route: 064

REACTIONS (5)
  - DRUG EXPOSURE DURING PREGNANCY [None]
  - GASTROINTESTINAL DISORDER CONGENITAL [None]
  - HAEMORRHAGE FOETAL [None]
  - INTRA-UTERINE DEATH [None]
  - PREGNANCY [None]
